FAERS Safety Report 8476829-X (Version None)
Quarter: 2012Q2

REPORT INFORMATION
  Report Type: 
  Country: None (occurrence: None)
  Receive Date: 20120629
  Receipt Date: 20120619
  Transmission Date: 20120825
  Serious: Yes (Other)
  Sender: FDA-Public Use
  Company Number: NL-AMGEN-NLDSP2012031588

PATIENT
  Age: 56 Year
  Sex: Male

DRUGS (4)
  1. CRESTOR [Concomitant]
     Dosage: UNK UNK, UNK
  2. SELOKEEN                           /00376902/ [Concomitant]
     Dosage: UNK UNK, UNK
  3. ENBREL [Suspect]
     Indication: PSORIASIS
     Dosage: 50 MG, WEEKLY
     Dates: start: 20120326
  4. ACETYLSALICYLIC ACID SRT [Concomitant]
     Dosage: UNK UNK, UNK

REACTIONS (3)
  - EYE INFLAMMATION [None]
  - PNEUMONIA [None]
  - NASOPHARYNGITIS [None]
